FAERS Safety Report 7115595-7 (Version None)
Quarter: 2010Q4

REPORT INFORMATION
  Report Type: 
  Country: None (occurrence: None)
  Receive Date: 20101122
  Receipt Date: 20101109
  Transmission Date: 20110411
  Serious: Yes (Other)
  Sender: FDA-Public Use
  Company Number: GB-ELI_LILLY_AND_COMPANY-GB201011002245

PATIENT
  Age: 17 Year
  Sex: Female

DRUGS (3)
  1. PROZAC [Suspect]
     Indication: ILL-DEFINED DISORDER
  2. CONCERTA [Concomitant]
     Indication: ATTENTION DEFICIT/HYPERACTIVITY DISORDER
     Dosage: 18 MG, UNK
     Route: 048
     Dates: end: 20101004
  3. CONCERTA [Concomitant]
     Dosage: 27 MG, DAILY (1/D)
     Dates: start: 20101005

REACTIONS (4)
  - AGGRESSION [None]
  - ANXIETY [None]
  - SELF INJURIOUS BEHAVIOUR [None]
  - SUICIDAL IDEATION [None]
